FAERS Safety Report 17700556 (Version 1)
Quarter: 2020Q2

REPORT INFORMATION
  Report Type: Spontaneous
  Country: US (occurrence: US)
  Receive Date: 20200423
  Receipt Date: 20200423
  Transmission Date: 20200714
  Serious: No
  Sender: FDA-Public Use
  Company Number: US-ABBVIE-20K-163-3245688-00

PATIENT
  Sex: Female

DRUGS (1)
  1. ORILISSA [Suspect]
     Active Substance: ELAGOLIX SODIUM
     Indication: ENDOMETRIOSIS
     Route: 048

REACTIONS (9)
  - Exercise tolerance decreased [Unknown]
  - Asthenia [Unknown]
  - Dyspepsia [Unknown]
  - Condition aggravated [Unknown]
  - Hypophagia [Unknown]
  - Pain [Unknown]
  - Weight decreased [Unknown]
  - Weight increased [Unknown]
  - Diarrhoea [Unknown]
